FAERS Safety Report 4955299-X (Version None)
Quarter: 2006Q1

REPORT INFORMATION
  Report Type: 
  Country: None (occurrence: None)
  Receive Date: 20060328
  Receipt Date: 20040901
  Transmission Date: 20060701
  Serious: Yes (Disabling, Other)
  Sender: FDA-Public Use
  Company Number: DE-BRISTOL-MYERS SQUIBB COMPANY-13309976

PATIENT
  Age: 58 Year
  Sex: Male
  Weight: 48 kg

DRUGS (22)
  1. SUSTIVA [Suspect]
     Indication: HIV INFECTION
     Dosage: SEP-1999 TO MAY-2001, MAY-2001 TO OCT-2002, FEB-2003 TO JUL-2003
     Dates: start: 19990901, end: 20030701
  2. REYATAZ [Suspect]
     Indication: HIV INFECTION
     Dosage: STARTED 2004, STOPPED ON UNSPECIFIED DATE 2004, RESTARTED JUN-2004 TO AUG-2004
     Dates: start: 20040101, end: 20040801
  3. ZERIT [Suspect]
     Indication: HIV INFECTION
     Dates: start: 19990901, end: 20010501
  4. VIDEX [Suspect]
     Indication: HIV INFECTION
     Dosage: AUG-1996 TO SEP-1999, FEB-2003 TO JUL-2003
     Dates: start: 19960801, end: 20030701
  5. BISOPROLOL [Concomitant]
  6. PENTAMIDINE [Concomitant]
  7. FUROSEMIDE [Concomitant]
  8. ASPIRIN [Concomitant]
  9. ALLOPURINOL [Concomitant]
  10. EPOGEN [Concomitant]
  11. LOPERAMIDE [Concomitant]
  12. AMLODIPINE [Concomitant]
  13. CANDESARTAN [Concomitant]
  14. ATORVASTATIN CALCIUM [Concomitant]
  15. OMEGA 3 FATTY ACID [Concomitant]
  16. ZIDOVUDINE [Concomitant]
     Indication: HIV INFECTION
     Dosage: MAR-1995 TO AUG-1996, AUG-1996 TO SEP-1999, MAY-2001 TO OCT-2002, NOV/DEC-2002 TO FEB-2003
     Dates: start: 19950501, end: 20030201
  17. LAMIVUDINE [Concomitant]
     Indication: HIV INFECTION
     Dosage: MAR-1995 TO AUG-1996, SEP-1999 TO MAY-2001, MAY-2001 TO OCT-2002, NOV/DEC-2002 TO FEB-2003
     Dates: start: 19950301, end: 20030201
  18. INDINIVIR SULFATE [Concomitant]
     Indication: HIV INFECTION
     Dates: start: 19960801, end: 19990901
  19. NELFINAVIR MESYLATE [Concomitant]
     Indication: HIV INFECTION
     Dosage: FEB-2003 TO JUL-2003, RESTARTED IN 2004 AND STOPPED, RESTARTED AUG-2004
     Dates: start: 20030201
  20. LOPINAVIR + RITONAVIR [Concomitant]
     Indication: HIV INFECTION
     Dosage: JUL-2003 TO 2004, JUNE-2004 TO AUG-2004, RESTARTED AUG-2004
     Dates: start: 20030701
  21. RITONAVIR [Concomitant]
     Indication: HIV INFECTION
     Dates: start: 20040601, end: 20040801
  22. SAQUINAVIR [Concomitant]
     Indication: HIV INFECTION
     Dates: start: 20040601, end: 20040801

REACTIONS (12)
  - CORONARY ARTERY DISEASE [None]
  - DRUG RESISTANCE [None]
  - GAMMA-GLUTAMYLTRANSFERASE INCREASED [None]
  - GASTRITIS HAEMORRHAGIC [None]
  - HYPERTRIGLYCERIDAEMIA [None]
  - LEFT VENTRICULAR FAILURE [None]
  - LIPASE INCREASED [None]
  - LIPODYSTROPHY ACQUIRED [None]
  - MITRAL VALVE INCOMPETENCE [None]
  - MYOCARDIAL INFARCTION [None]
  - PNEUMONIA [None]
  - RENAL FAILURE [None]
